FAERS Safety Report 14811087 (Version 2)
Quarter: 2018Q3

REPORT INFORMATION
  Report Type: Report from Study
  Country: US (occurrence: US)
  Receive Date: 20180425
  Receipt Date: 20180719
  Transmission Date: 20181010
  Serious: No
  Sender: FDA-Public Use
  Company Number: US-AMGEN-USASL2018037573

PATIENT
  Age: 79 Year
  Sex: Female

DRUGS (2)
  1. CITRUS [Concomitant]
  2. REPATHA [Suspect]
     Active Substance: EVOLOCUMAB
     Indication: HYPERLIPIDAEMIA
     Dosage: 140 MG, Q2WK
     Route: 058

REACTIONS (3)
  - Dehydration [Recovering/Resolving]
  - Oral mucosal eruption [Recovering/Resolving]
  - Lip dry [Recovering/Resolving]

NARRATIVE: CASE EVENT DATE: 2018
